FAERS Safety Report 15743458 (Version 2)
Quarter: 2019Q1

REPORT INFORMATION
  Report Type: Report from Study
  Country: US (occurrence: US)
  Receive Date: 20181220
  Receipt Date: 20190121
  Transmission Date: 20190417
  Serious: Yes (Hospitalization)
  Sender: FDA-Public Use
  Company Number: US-GILEAD-2018-0381096

PATIENT
  Age: 74 Year
  Sex: Female

DRUGS (34)
  1. LANSOPRAZOLE. [Concomitant]
     Active Substance: LANSOPRAZOLE
  2. OXYCODONE [Concomitant]
     Active Substance: OXYCODONE
  3. VITAMIN D3 [Concomitant]
     Active Substance: CHOLECALCIFEROL
  4. AMLODIPINE [Concomitant]
     Active Substance: AMLODIPINE BESYLATE
  5. CHLORTHALIDONE. [Concomitant]
     Active Substance: CHLORTHALIDONE
  6. LIDOCAINE. [Concomitant]
     Active Substance: LIDOCAINE
  7. ALBUTEROL [SALBUTAMOL SULFATE] [Concomitant]
     Active Substance: ALBUTEROL SULFATE
  8. CETIRIZINE [Concomitant]
     Active Substance: CETIRIZINE HYDROCHLORIDE
  9. FEROSUL [Concomitant]
  10. STIOLTO RESPIMAT [Concomitant]
     Active Substance: OLODATEROL HYDROCHLORIDE\TIOTROPIUM BROMIDE MONOHYDRATE
  11. TRAMADOL. [Concomitant]
     Active Substance: TRAMADOL
  12. EPINEPHRINE. [Concomitant]
     Active Substance: EPINEPHRINE
  13. METHYLPRED [Concomitant]
     Active Substance: METHYLPREDNISOLONE
  14. BISOPROL [Concomitant]
     Active Substance: BISOPROLOL FUMARATE
  15. LASIX [Concomitant]
     Active Substance: FUROSEMIDE
  16. POTASSIUM CHLORIDE. [Concomitant]
     Active Substance: POTASSIUM CHLORIDE
  17. PRAVASTATIN. [Concomitant]
     Active Substance: PRAVASTATIN
  18. PROAIR [FLUTICASONE PROPIONATE] [Concomitant]
  19. AMBRISENTAN [Suspect]
     Active Substance: AMBRISENTAN
     Indication: PULMONARY ARTERIAL HYPERTENSION
     Dosage: 10 MG, QD
     Route: 065
     Dates: start: 20110526
  20. AZATHIOPRINE. [Concomitant]
     Active Substance: AZATHIOPRINE
  21. CLOPIDOGREL [Concomitant]
     Active Substance: CLOPIDOGREL BISULFATE
  22. FUROSEMIDE. [Concomitant]
     Active Substance: FUROSEMIDE
  23. GABAPENTIN. [Concomitant]
     Active Substance: GABAPENTIN
  24. DESOXIMETASON [Concomitant]
  25. POLYETHYLENE GLYCOL [Concomitant]
     Active Substance: POLYETHYLENE GLYCOLS
  26. DULOXETINE [DULOXETINE HYDROCHLORIDE] [Concomitant]
  27. ADEMPAS [Concomitant]
     Active Substance: RIOCIGUAT
  28. FLUCONAZOLE. [Concomitant]
     Active Substance: FLUCONAZOLE
  29. ASPIRIN (E.C.) [Concomitant]
     Active Substance: ASPIRIN
  30. PLAVIX [Concomitant]
     Active Substance: CLOPIDOGREL BISULFATE
  31. VITAMIN B12 [Concomitant]
     Active Substance: CYANOCOBALAMIN
  32. CYANOCOBALAMIN. [Concomitant]
     Active Substance: CYANOCOBALAMIN
  33. FOLIC ACID. [Concomitant]
     Active Substance: FOLIC ACID
  34. GAVILYTE G [Concomitant]
     Active Substance: POLYETHYLENE GLYCOL 3350\POTASSIUM CHLORIDE\SODIUM BICARBONATE\SODIUM CHLORIDE\SODIUM SULFATE ANHYDROUS

REACTIONS (2)
  - Arthropathy [Unknown]
  - Road traffic accident [Not Recovered/Not Resolved]
